FAERS Safety Report 6451837-9 (Version None)
Quarter: 2009Q4

REPORT INFORMATION
  Report Type: 
  Country: None (occurrence: None)
  Receive Date: 20091117
  Receipt Date: 20091103
  Transmission Date: 20100525
  Serious: Yes (Other)
  Sender: FDA-Public Use
  Company Number: 1000010045

PATIENT
  Sex: Male

DRUGS (3)
  1. ESCITALOPRAM [Suspect]
     Dosage: 10 MG
  2. TRAMADOL HCL [Suspect]
     Dosage: 20 GTT
  3. ANESTHETIC [Suspect]

REACTIONS (5)
  - ANGER [None]
  - ANXIETY [None]
  - HAEMORRHOID OPERATION [None]
  - INCORRECT DOSE ADMINISTERED [None]
  - MEMORY IMPAIRMENT [None]
